FAERS Safety Report 6020711-4 (Version None)
Quarter: 2008Q4

REPORT INFORMATION
  Report Type: 
  Country: None (occurrence: None)
  Receive Date: 20081222
  Receipt Date: 20081209
  Transmission Date: 20090506
  Serious: Yes (Death, Hospitalization, Other)
  Sender: FDA-Public Use
  Company Number: 55032

PATIENT
  Age: 77 Year
  Sex: Female

DRUGS (1)
  1. METHOTREXATE [Suspect]
     Indication: RHEUMATOID ARTHRITIS
     Dosage: 10MG; 15MG; ONCE WEEKLY

REACTIONS (4)
  - BONE MARROW FAILURE [None]
  - DIARRHOEA [None]
  - DRUG TOXICITY [None]
  - RENAL IMPAIRMENT [None]
